FAERS Safety Report 4448155-7 (Version None)
Quarter: 2004Q3

REPORT INFORMATION
  Report Type: 
  Country: None (occurrence: None)
  Receive Date: 20040812
  Receipt Date: 20040611
  Transmission Date: 20050211
  Serious: No
  Sender: FDA-Public Use
  Company Number: USA040669622

PATIENT
  Age: 71 Year
  Sex: Male
  Weight: 84 kg

DRUGS (1)
  1. CIALIS [Suspect]
     Dosage: 20 MG DAY
     Dates: start: 20040607

REACTIONS (4)
  - DRUG INEFFECTIVE [None]
  - FEELING HOT [None]
  - HEADACHE [None]
  - NASAL CONGESTION [None]
